FAERS Safety Report 18243996 (Version 4)
Quarter: 2021Q1

REPORT INFORMATION
  Report Type: Report from Study
  Country: US (occurrence: US)
  Receive Date: 20200908
  Receipt Date: 20210118
  Transmission Date: 20210419
  Serious: No
  Sender: FDA-Public Use
  Company Number: NVSC2020US241820

PATIENT
  Sex: Female

DRUGS (1)
  1. COSENTYX [Suspect]
     Active Substance: SECUKINUMAB
     Indication: PSORIATIC ARTHROPATHY
     Dosage: UNK
     Route: 058

REACTIONS (5)
  - Product storage error [Unknown]
  - Peripheral swelling [Unknown]
  - Chest discomfort [Unknown]
  - Anxiety [Unknown]
  - Eye infection [Unknown]
